FAERS Safety Report 12995216 (Version 1)
Quarter: 2016Q4

REPORT INFORMATION
  Report Type: Spontaneous
  Country: US (occurrence: US)
  Receive Date: 20161202
  Receipt Date: 20161202
  Transmission Date: 20170207
  Serious: Yes (Hospitalization)
  Sender: FDA-Public Use
  Company Number: US-NOVOPROD-520928

PATIENT
  Age: 47 Year
  Sex: Male
  Weight: 104.31 kg

DRUGS (4)
  1. TRESIBA FLEXTOUCH U200 [Suspect]
     Active Substance: INSULIN DEGLUDEC
     Indication: TYPE 1 DIABETES MELLITUS
     Dosage: 40 U, QD
     Route: 058
     Dates: start: 2016, end: 2016
  2. LITHIUM. [Suspect]
     Active Substance: LITHIUM
     Indication: DEPRESSION
     Dosage: UNKNOWN
     Route: 048
     Dates: end: 201610
  3. TRESIBA FLEXTOUCH U200 [Suspect]
     Active Substance: INSULIN DEGLUDEC
     Dosage: 16 U, QD
     Route: 058
     Dates: start: 2016
  4. TRESIBA FLEXTOUCH U200 [Suspect]
     Active Substance: INSULIN DEGLUDEC
     Indication: TYPE 2 DIABETES MELLITUS
     Dosage: DECREASE BY 2 UNITS EVERY DAY UNTIL LEVELED OUT
     Route: 058
     Dates: start: 2016, end: 2016

REACTIONS (5)
  - Blood glucose fluctuation [Recovering/Resolving]
  - Pneumonia [Recovering/Resolving]
  - Dehydration [Unknown]
  - Toxicity to various agents [Recovered/Resolved]
  - Blood glucose fluctuation [Recovering/Resolving]

NARRATIVE: CASE EVENT DATE: 2016
